FAERS Safety Report 16332831 (Version 4)
Quarter: 2021Q3

REPORT INFORMATION
  Report Type: Spontaneous
  Country: US (occurrence: US)
  Receive Date: 20190520
  Receipt Date: 20210810
  Transmission Date: 20211014
  Serious: No
  Sender: FDA-Public Use
  Company Number: US-PFIZER INC-2019210307

PATIENT
  Age: 55 Year
  Sex: Male

DRUGS (1)
  1. LYRICA [Suspect]
     Active Substance: PREGABALIN
     Indication: RADICULAR PAIN
     Dosage: 150 MG, THREE TIMES A DAY

REACTIONS (3)
  - Sleep disorder [Unknown]
  - Affective disorder [Unknown]
  - Weight increased [Unknown]
